FAERS Safety Report 8841845 (Version 1)
Quarter: 2012Q4

REPORT INFORMATION
  Report Type: Spontaneous
  Country: US (occurrence: None)
  Receive Date: 20121015
  Receipt Date: 20121015
  Transmission Date: 20130627
  Serious: Yes (Other)
  Sender: FDA-Public Use
  Company Number: None

PATIENT
  Age: 71 Year
  Sex: Male
  Weight: 81.65 kg

DRUGS (1)
  1. GLIPIZIDE [Suspect]
     Dosage: 1 tablet, 2 times daily, 5 mg
     Dates: start: 20120904, end: 20120907

REACTIONS (3)
  - Swelling face [None]
  - Local swelling [None]
  - Dysphagia [None]
